FAERS Safety Report 6285366-2 (Version None)
Quarter: 2009Q3

REPORT INFORMATION
  Report Type: 
  Country: None (occurrence: None)
  Receive Date: 20090727
  Receipt Date: 20090715
  Transmission Date: 20100115
  Serious: Yes (Hospitalization)
  Sender: FDA-Public Use
  Company Number: US-PFIZER INC-2009240271

PATIENT
  Sex: Female
  Weight: 51.247 kg

DRUGS (14)
  1. CP-751,871 [Suspect]
     Indication: RECTAL CANCER METASTATIC
     Dosage: 1026 MG, EVERY 3 WEEKS
     Route: 042
     Dates: start: 20090701
  2. SUNITINIB MALATE [Suspect]
     Indication: RECTAL CANCER METASTATIC
     Dosage: 25 MG, CONTINUOUS DAILY DOSING
     Route: 048
     Dates: start: 20090701
  3. OXYCODONE [Concomitant]
     Indication: ABDOMINAL PAIN
     Dosage: UNK
     Dates: start: 20090602
  4. OXYCODONE [Concomitant]
     Dosage: UNK
     Dates: start: 20050701
  5. ADVIL [Concomitant]
     Indication: PAIN
     Dosage: UNK
     Dates: start: 19900101
  6. DIAZEPAM [Concomitant]
     Indication: ANXIETY DISORDER
     Dosage: UNK
     Dates: start: 20070401
  7. TEMAZEPAM [Concomitant]
     Indication: ANXIETY
     Dosage: UNK
     Dates: start: 20090615
  8. REGLAN [Concomitant]
     Indication: NAUSEA
     Dosage: UNK
  9. REGLAN [Concomitant]
     Indication: VOMITING
  10. ZOFRAN [Concomitant]
     Indication: NAUSEA
     Dosage: UNK
  11. ZOFRAN [Concomitant]
     Indication: VOMITING
  12. NYQUIL [Concomitant]
     Indication: COUGH
     Dosage: UNK
     Dates: start: 20070101
  13. SENOKOT [Concomitant]
     Indication: CONSTIPATION
     Dosage: UNK
     Dates: start: 20090615
  14. NYSTATIN [Concomitant]
     Indication: ORAL CANDIDIASIS
     Dosage: UNK
     Dates: start: 20090626

REACTIONS (1)
  - ASCITES [None]
